FAERS Safety Report 6402502-5 (Version None)
Quarter: 2009Q4

REPORT INFORMATION
  Report Type: 
  Country: None (occurrence: None)
  Receive Date: 20091015
  Receipt Date: 20091006
  Transmission Date: 20100525
  Serious: Yes (Hospitalization)
  Sender: FDA-Public Use
  Company Number: FR-ABBOTT-09P-056-0601029-00

PATIENT
  Sex: Male

DRUGS (3)
  1. DEPAKENE [Suspect]
     Indication: POST-TRAUMATIC EPILEPSY
     Route: 048
  2. DEPAKENE [Suspect]
     Route: 048
  3. DANTRIUM [Concomitant]
     Indication: HEMIPLEGIA
     Route: 048

REACTIONS (4)
  - ANTICONVULSANT DRUG LEVEL DECREASED [None]
  - CONVULSION [None]
  - DRUG LEVEL DECREASED [None]
  - EPILEPSY [None]
